FAERS Safety Report 5635964-1 (Version None)
Quarter: 2008Q1

REPORT INFORMATION
  Report Type: 
  Country: None (occurrence: None)
  Receive Date: 20080224
  Receipt Date: 20080218
  Transmission Date: 20080703
  Serious: Yes (Hospitalization, Other)
  Sender: FDA-Public Use
  Company Number: PHNU2008DE01008

PATIENT
  Age: 84 Year
  Sex: Male

DRUGS (25)
  1. VOLTAREN [Suspect]
     Indication: PAIN
     Dosage: 2 DF, PRN
     Dates: start: 20040101, end: 20050821
  2. VOLTAREN [Suspect]
     Dosage: 1 DF, BID
     Route: 048
     Dates: start: 20050822, end: 20050828
  3. NOVALGIN [Suspect]
     Indication: PAIN
     Dates: start: 20050401, end: 20050821
  4. FRAXIPARIN [Suspect]
     Indication: THROMBOSIS PROPHYLAXIS
     Dosage: 1 DF, QD
     Route: 058
     Dates: start: 20050821
  5. ACETYLCYSTEINE [Suspect]
     Indication: COUGH
     Dosage: 600 MG, QD
     Route: 048
     Dates: start: 20050821
  6. CIPRO [Suspect]
     Indication: URINARY TRACT INFECTION
     Dosage: 1 DF, BID
     Route: 048
     Dates: start: 20050822, end: 20050824
  7. NOVALGIN [Suspect]
     Dosage: 1 DF, QD
     Route: 042
     Dates: start: 20050824, end: 20050825
  8. COTRIM [Suspect]
     Indication: URINARY TRACT INFECTION
     Dosage: 1 DF, BID
     Route: 048
     Dates: start: 20050824, end: 20050827
  9. ELOBACT [Concomitant]
     Dosage: 1/0/0.5DF/DAY
     Route: 048
     Dates: start: 20050514, end: 20050814
  10. SYMPAL [Concomitant]
     Indication: PAIN
     Dosage: 1 DF, BID
     Route: 048
     Dates: start: 20050301, end: 20050821
  11. ALPHA-VIBOLEX [Concomitant]
     Dosage: 1 DF, QD
     Route: 048
     Dates: start: 20050301, end: 20050822
  12. TOGAL CLASSIC [Concomitant]
     Indication: DRUG ABUSER
     Dosage: UNK, PRN
     Route: 048
     Dates: start: 20040101
  13. FERRO ^SANOL^ [Concomitant]
     Dosage: 1 DF, QD
     Route: 048
     Dates: start: 20050301
  14. NEURONTIN [Concomitant]
     Dosage: 300 MG, PRN
     Dates: start: 20050629, end: 20050821
  15. NEURONTIN [Concomitant]
     Dosage: 300 MG, QD
     Route: 048
     Dates: start: 20050822
  16. SPIRIVA [Concomitant]
     Indication: CHRONIC OBSTRUCTIVE PULMONARY DISEASE
     Dosage: 1 DF, QD
     Dates: start: 20050301
  17. LASIX [Concomitant]
     Indication: HYPERTENSION
     Dosage: 40 MG, QD
     Route: 048
     Dates: start: 20050301
  18. DECORTIN [Concomitant]
     Indication: CHRONIC OBSTRUCTIVE PULMONARY DISEASE
     Dosage: 10 MG, BID
     Route: 048
     Dates: start: 20050615
  19. PANTOZOL [Concomitant]
     Indication: PROPHYLAXIS
     Dosage: 20 MG, QD
     Route: 048
     Dates: start: 20050301
  20. ZOLOFT [Concomitant]
     Indication: DEPRESSION
     Dosage: 50 MG, BID
     Route: 048
     Dates: start: 20020420
  21. CASODEX [Concomitant]
     Indication: PROSTATE CANCER
     Dosage: 1 DF, QD
     Dates: start: 20030702
  22. RINGER [Concomitant]
     Dates: start: 20050823, end: 20050827
  23. KALINOR RETARD [Concomitant]
     Indication: HYPOKALAEMIA
     Dosage: 2 DF, TID
     Dates: start: 20050824
  24. SOLU-DECORTIN-H [Concomitant]
     Indication: SKIN DISORDER
     Dosage: 100 MG, ONCE/SINGLE
     Route: 042
     Dates: start: 20050827, end: 20050827
  25. CETRIZIN /BRA/ [Concomitant]
     Indication: PRURITUS
     Dosage: 1 DF, QD
     Route: 048
     Dates: start: 20050827

REACTIONS (16)
  - CONSTIPATION [None]
  - COUGH [None]
  - DEPRESSION [None]
  - DISTURBANCE IN ATTENTION [None]
  - DYSPNOEA [None]
  - ERYTHEMA [None]
  - HYPOKALAEMIA [None]
  - INFECTION [None]
  - LIP ULCERATION [None]
  - PRURITUS [None]
  - PYREXIA [None]
  - RASH PUSTULAR [None]
  - SKIN DISORDER [None]
  - SLEEP DISORDER [None]
  - STEVENS-JOHNSON SYNDROME [None]
  - URINARY TRACT INFECTION [None]
